FAERS Safety Report 6334953-1 (Version None)
Quarter: 2009Q3

REPORT INFORMATION
  Report Type: 
  Country: None (occurrence: None)
  Receive Date: 20090828
  Receipt Date: 20090828
  Transmission Date: 20100115
  Serious: Yes (Other)
  Sender: FDA-Public Use
  Company Number: None

PATIENT
  Age: 51 Year
  Sex: Female
  Weight: 63.5036 kg

DRUGS (1)
  1. RECLAST [Suspect]
     Indication: OSTEITIS DEFORMANS
     Dosage: 5 MG Q 12 MONTHS IV (041)
     Route: 042
     Dates: start: 20090601

REACTIONS (3)
  - DYSPEPSIA [None]
  - INFLUENZA LIKE ILLNESS [None]
  - VOMITING [None]
